FAERS Safety Report 5015650-1 (Version None)
Quarter: 2006Q2

REPORT INFORMATION
  Report Type: 
  Country: None (occurrence: None)
  Receive Date: 20060601
  Receipt Date: 20060525
  Transmission Date: 20061013
  Serious: Yes (Hospitalization)
  Sender: FDA-Public Use
  Company Number: US-GLAXOSMITHKLINE-A0606960A

PATIENT
  Age: 79 Year
  Sex: Male

DRUGS (7)
  1. AVANDIA [Suspect]
     Dosage: 4MG TWICE PER DAY
     Route: 048
  2. GLYBURIDE [Concomitant]
  3. INDERAL [Concomitant]
  4. PROTONIX [Concomitant]
  5. FLOMAX [Concomitant]
  6. FUROSEMIDE [Concomitant]
  7. ASPIRIN [Concomitant]

REACTIONS (3)
  - CARDIAC FAILURE [None]
  - URINE OUTPUT INCREASED [None]
  - WEIGHT DECREASED [None]
